FAERS Safety Report 23291381 (Version 2)
Quarter: 2023Q4

REPORT INFORMATION
  Report Type: Spontaneous
  Country: FR (occurrence: FR)
  Receive Date: 20231213
  Receipt Date: 20231228
  Transmission Date: 20240110
  Serious: Yes (Other)
  Sender: FDA-Public Use
  Company Number: None

PATIENT
  Age: 96 Year
  Sex: Male

DRUGS (9)
  1. FUROSEMIDE [Suspect]
     Active Substance: FUROSEMIDE
     Indication: Wrong dose
     Dates: start: 20231006, end: 20231006
  2. TELMISARTAN [Suspect]
     Active Substance: TELMISARTAN
     Indication: Wrong dose
     Dates: start: 20231006, end: 20231006
  3. SECTRAL [Suspect]
     Active Substance: ACEBUTOLOL HYDROCHLORIDE
     Indication: Wrong dose
     Dates: start: 20231006, end: 20231006
  4. OXAZEPAM [Concomitant]
     Active Substance: OXAZEPAM
  5. LANSOPRAZOLE [Concomitant]
     Active Substance: LANSOPRAZOLE
  6. MELATONIN [Concomitant]
     Active Substance: MELATONIN
  7. IBUPROFEN [Concomitant]
     Active Substance: IBUPROFEN
  8. SILODOSIN [Concomitant]
     Active Substance: SILODOSIN
  9. PAROXETINE HYDROCHLORIDE [Concomitant]
     Active Substance: PAROXETINE HYDROCHLORIDE\PAROXETINE HYDROCHLORIDE ANHYDROUS

REACTIONS (4)
  - Bradycardia [Recovered/Resolved]
  - Hypotension [Recovered/Resolved]
  - Malaise [Recovered/Resolved]
  - Incorrect dose administered [Recovered/Resolved]

NARRATIVE: CASE EVENT DATE: 20231006
